FAERS Safety Report 4990975-4 (Version None)
Quarter: 2006Q2

REPORT INFORMATION
  Report Type: 
  Country: None (occurrence: None)
  Receive Date: 20060503
  Receipt Date: 20060426
  Transmission Date: 20061013
  Serious: Yes (Hospitalization)
  Sender: FDA-Public Use
  Company Number: AU-MERCK-0604AUS00225

PATIENT
  Age: 56 Year
  Sex: Female

DRUGS (6)
  1. FOSAMAX [Suspect]
     Indication: OSTEOPOROSIS
     Route: 048
     Dates: start: 19990401
  2. TEMAZEPAM [Concomitant]
     Indication: DEPRESSION
     Route: 065
     Dates: start: 19860101, end: 20040101
  3. SETRALINE HCL [Suspect]
     Indication: DEPRESSION
     Route: 065
     Dates: start: 20050101
  4. DIAZEPAM [Suspect]
     Indication: DEPRESSION
     Route: 065
     Dates: start: 20050101
  5. INDAPAMIDE AND PERINDOPRIL ERBUMINE [Concomitant]
     Indication: HYPERTENSION
     Route: 065
     Dates: start: 20020101
  6. ERGOCALCIFEROL [Suspect]
     Route: 065

REACTIONS (11)
  - CEREBROVASCULAR ACCIDENT [None]
  - DEPRESSION [None]
  - DRUG ADMINISTRATION ERROR [None]
  - DYSGRAPHIA [None]
  - DYSPEPSIA [None]
  - DYSPHEMIA [None]
  - GAMMA-GLUTAMYLTRANSFERASE INCREASED [None]
  - GASTROOESOPHAGEAL REFLUX DISEASE [None]
  - HYPERTENSION [None]
  - LIVER FUNCTION TEST ABNORMAL [None]
  - TREATMENT NONCOMPLIANCE [None]
